FAERS Safety Report 6334838-0 (Version None)
Quarter: 2009Q3

REPORT INFORMATION
  Report Type: 
  Country: None (occurrence: None)
  Receive Date: 20090827
  Receipt Date: 20090820
  Transmission Date: 20100115
  Serious: Yes (Other)
  Sender: FDA-Public Use
  Company Number: 2009009870

PATIENT
  Age: 18 Year
  Sex: Female
  Weight: 47.6277 kg

DRUGS (10)
  1. PROVIGIL [Suspect]
     Indication: HYPERSOMNIA
     Dosage: 100 MG (100 MG, 1 IN 1 D), ORAL, 200 MG (200 MG, 1 IN 1 D), ORAL, 100 MG (100 MG, 1 IN 1 D), ORAL, 1
     Route: 048
     Dates: start: 20090806, end: 20090806
  2. PROVIGIL [Suspect]
     Indication: HYPERSOMNIA
     Dosage: 100 MG (100 MG, 1 IN 1 D), ORAL, 200 MG (200 MG, 1 IN 1 D), ORAL, 100 MG (100 MG, 1 IN 1 D), ORAL, 1
     Route: 048
     Dates: start: 20090807, end: 20090807
  3. PROVIGIL [Suspect]
     Indication: HYPERSOMNIA
     Dosage: 100 MG (100 MG, 1 IN 1 D), ORAL, 200 MG (200 MG, 1 IN 1 D), ORAL, 100 MG (100 MG, 1 IN 1 D), ORAL, 1
     Route: 048
     Dates: start: 20090810, end: 20090810
  4. PROVIGIL [Suspect]
     Indication: HYPERSOMNIA
     Dosage: 100 MG (100 MG, 1 IN 1 D), ORAL, 200 MG (200 MG, 1 IN 1 D), ORAL, 100 MG (100 MG, 1 IN 1 D), ORAL, 1
     Route: 048
     Dates: start: 20090811, end: 20090813
  5. PROVIGIL [Suspect]
     Indication: HYPERSOMNIA
     Dosage: 100 MG (100 MG, 1 IN 1 D), ORAL, 200 MG (200 MG, 1 IN 1 D), ORAL, 100 MG (100 MG, 1 IN 1 D), ORAL, 1
     Route: 048
     Dates: start: 20090814, end: 20090815
  6. PROVIGIL [Suspect]
     Indication: HYPERSOMNIA
     Dosage: 100 MG (100 MG, 1 IN 1 D), ORAL, 200 MG (200 MG, 1 IN 1 D), ORAL, 100 MG (100 MG, 1 IN 1 D), ORAL, 1
     Route: 048
     Dates: start: 20090816
  7. LAMOTRIGINE [Concomitant]
  8. OXCARBAZEPINE [Concomitant]
  9. CLONAZEPAM [Concomitant]
  10. PRISTIQ (DESVENLAFAXIN) [Concomitant]

REACTIONS (7)
  - ANXIETY [None]
  - CONVULSION [None]
  - HEART RATE INCREASED [None]
  - INCORRECT DOSE ADMINISTERED [None]
  - MYALGIA [None]
  - NO THERAPEUTIC RESPONSE [None]
  - TREMOR [None]
